FAERS Safety Report 4627865-2 (Version None)
Quarter: 2005Q2

REPORT INFORMATION
  Report Type: 
  Country: None (occurrence: None)
  Receive Date: 20050406
  Receipt Date: 20050323
  Transmission Date: 20051028
  Serious: Yes (Other)
  Sender: FDA-Public Use
  Company Number: NL-JNJFOC-20050307062

PATIENT

DRUGS (1)
  1. INFLIXIMAB [Suspect]
     Indication: RHEUMATOID ARTHRITIS
     Dosage: ROUNDED TO A MULTIPLE OF 100 MG + ADMINISTERED WEEKS 0, 2, 6 AND THEN EVERY EIGHT WEEKS
     Route: 042

REACTIONS (1)
  - BREAST CANCER METASTATIC [None]
